FAERS Safety Report 10195516 (Version 1)
Quarter: 2014Q2

REPORT INFORMATION
  Report Type: Report from Study
  Country: US (occurrence: US)
  Receive Date: 20140526
  Receipt Date: 20140526
  Transmission Date: 20141212
  Serious: Yes (Death)
  Sender: FDA-Public Use
  Company Number: US-BRISTOL-MYERS SQUIBB COMPANY-20766309

PATIENT
  Age: 23 Year
  Sex: Female

DRUGS (1)
  1. YERVOY [Suspect]
     Indication: SKIN CANCER
     Dates: start: 201310

REACTIONS (1)
  - Death [Fatal]
